FAERS Safety Report 4576661-3 (Version None)
Quarter: 2005Q1

REPORT INFORMATION
  Report Type: 
  Country: None (occurrence: None)
  Receive Date: 20050127
  Receipt Date: 20041007
  Transmission Date: 20050727
  Serious: No
  Sender: FDA-Public Use
  Company Number: USA041080467

PATIENT
  Age: 28 Year
  Sex: Male
  Weight: 73 kg

DRUGS (1)
  1. STRATTERA [Suspect]
     Dosage: 25 MG DAY
     Dates: start: 20041004

REACTIONS (8)
  - CHEST PAIN [None]
  - CONSTIPATION [None]
  - ERECTILE DYSFUNCTION [None]
  - FEELING JITTERY [None]
  - HEART RATE INCREASED [None]
  - INSOMNIA [None]
  - PREMATURE EJACULATION [None]
  - SEXUAL DYSFUNCTION [None]
